FAERS Safety Report 16180956 (Version 3)
Quarter: 2019Q2

REPORT INFORMATION
  Report Type: Spontaneous
  Country: NL (occurrence: NL)
  Receive Date: 20190410
  Receipt Date: 20190516
  Transmission Date: 20190711
  Serious: Yes (Other)
  Sender: FDA-Public Use
  Company Number: PHHY2019NL081860

PATIENT
  Age: 70 Year
  Sex: Male
  Weight: 138 kg

DRUGS (6)
  1. COLCHICINE. [Concomitant]
     Active Substance: COLCHICINE
     Indication: GOUT
     Dosage: UNK
     Route: 065
  2. FEBUXOSTAT. [Suspect]
     Active Substance: FEBUXOSTAT
     Indication: GOUTY TOPHUS
     Dosage: 40 MG, QD
     Route: 065
  3. FEBUXOSTAT. [Suspect]
     Active Substance: FEBUXOSTAT
     Indication: GOUT
     Dosage: 80 MG, UNK
     Route: 065
  4. ALLOPURINOL. [Suspect]
     Active Substance: ALLOPURINOL
     Indication: GOUT
     Dosage: UNK
     Route: 065
  5. BENZBROMARONE [Suspect]
     Active Substance: BENZBROMARONE
     Indication: GOUTY TOPHUS
  6. BENZBROMARONE [Suspect]
     Active Substance: BENZBROMARONE
     Indication: GOUT
     Dosage: 100 MG, UNK
     Route: 065

REACTIONS (5)
  - Polyneuropathy [Unknown]
  - Skin disorder [Unknown]
  - Abdominal discomfort [Recovered/Resolved]
  - Feeling abnormal [Recovered/Resolved]
  - Drug ineffective [Unknown]
